FAERS Safety Report 12713669 (Version 1)
Quarter: 2016Q3

REPORT INFORMATION
  Report Type: Spontaneous
  Country: US (occurrence: US)
  Receive Date: 20160904
  Receipt Date: 20160904
  Transmission Date: 20161109
  Serious: No
  Sender: FDA-Public Use
  Company Number: US-ASTRAZENECA-2015SE55957

PATIENT
  Age: 27484 Day
  Sex: Female

DRUGS (1)
  1. BRILINTA [Suspect]
     Active Substance: TICAGRELOR
     Indication: ACUTE CORONARY SYNDROME
     Route: 048

REACTIONS (5)
  - Cough [Unknown]
  - Malaise [Unknown]
  - Adverse event [Unknown]
  - Confusional state [Unknown]
  - Presyncope [Unknown]

NARRATIVE: CASE EVENT DATE: 20150604
